FAERS Safety Report 9163368 (Version 1)
Quarter: 2013Q1

REPORT INFORMATION
  Report Type: Other
  Country: FR (occurrence: FR)
  Receive Date: 20130314
  Receipt Date: 20130314
  Transmission Date: 20140127
  Serious: Yes (Hospitalization)
  Sender: FDA-Public Use
  Company Number: FR-WATSON-2013-03775

PATIENT
  Age: 54 Year
  Sex: Female
  Weight: 84 kg

DRUGS (7)
  1. CITRATE DE B [Suspect]
     Indication: PRODUCT USED FOR UNKNOWN INDICATION
     Route: 048
  2. IBUPROFEN (UNKNOWN) [Suspect]
     Indication: BACK PAIN
     Dosage: 400 MG, TID
     Route: 048
     Dates: end: 20120908
  3. LIDENE [Suspect]
     Indication: SLEEP DISORDER
     Dosage: 15 MG, UNKNOWN
     Route: 048
     Dates: start: 201207, end: 20120908
  4. OMEGA-3-ACID ETHYL ESTERS [Suspect]
     Indication: PRODUCT USED FOR UNKNOWN INDICATION
     Route: 048
  5. TENORETIC [Concomitant]
     Indication: HYPERTENSION
     Dosage: UNK
     Route: 048
  6. DOLIPRANE [Concomitant]
     Indication: BACK PAIN
     Dosage: UNK
     Route: 048
  7. DAFALGAN CODEINE [Concomitant]
     Indication: BACK PAIN
     Dosage: UNK
     Route: 048

REACTIONS (1)
  - Coombs positive haemolytic anaemia [Recovering/Resolving]
